FAERS Safety Report 17121383 (Version 3)
Quarter: 2020Q1

REPORT INFORMATION
  Report Type: Spontaneous
  Country: BR (occurrence: BR)
  Receive Date: 20191206
  Receipt Date: 20200212
  Transmission Date: 20200409
  Serious: Yes (Other)
  Sender: FDA-Public Use
  Company Number: BR-AMGEN-BRASP2013009205

PATIENT
  Age: 43 Year
  Sex: Female
  Weight: 79 kg

DRUGS (13)
  1. ENBREL [Suspect]
     Active Substance: ETANERCEPT
     Dosage: UNK
     Route: 065
  2. ENBREL [Suspect]
     Active Substance: ETANERCEPT
     Dosage: 50 MILLIGRAM, ONCE A WEEK
     Route: 058
     Dates: start: 2011
  3. CODEINE [Concomitant]
     Active Substance: CODEINE
     Dosage: 30 MILLIGRAM, UNK
  4. TRAMAL [Concomitant]
     Active Substance: TRAMADOL
     Dosage: 50 MILLIGRAM, UNK
  5. INDOMETACIN [Concomitant]
     Active Substance: INDOMETHACIN
     Dosage: 50 MILLIGRAM, UNK
  6. ENBREL [Suspect]
     Active Substance: ETANERCEPT
     Indication: ANKYLOSING SPONDYLITIS
     Dosage: 25 MILLIGRAM, TWICE A WEEK
     Route: 065
     Dates: start: 2008
  7. SULFASALAZINE. [Concomitant]
     Active Substance: SULFASALAZINE
     Dosage: 500 MILLIGRAM, UNK
  8. DOLANTINA [Concomitant]
     Active Substance: MEPERIDINE HYDROCHLORIDE
     Dosage: 50 MILLIGRAM, UNK
  9. ENBREL [Suspect]
     Active Substance: ETANERCEPT
     Indication: SPONDYLITIS
     Dosage: 50 MILLIGRAM, ONCE A WEEK
     Route: 058
     Dates: start: 2011
  10. METHOTREXATE. [Concomitant]
     Active Substance: METHOTREXATE
     Dosage: UNK
  11. DIPIRONE [Concomitant]
     Active Substance: METAMIZOLE SODIUM
     Dosage: UNK UNK, AS NECESSARY
  12. INDOCID [INDOMETACIN] [Concomitant]
     Active Substance: INDOMETHACIN
     Dosage: 50 MG, UNK
  13. ACYCLOVIR [ACICLOVIR] [Concomitant]
     Active Substance: ACYCLOVIR
     Dosage: 50 MG, UNK

REACTIONS (14)
  - Treatment failure [Unknown]
  - Back pain [Unknown]
  - Joint swelling [Unknown]
  - Condition aggravated [Unknown]
  - Spinal cord compression [Unknown]
  - Somatic symptom disorder [Unknown]
  - Injection site pain [Unknown]
  - Pyrexia [Unknown]
  - Infection [Unknown]
  - Sinusitis [Unknown]
  - Neck pain [Unknown]
  - Hernia [Unknown]
  - Spinal disorder [Unknown]
  - Pain [Unknown]

NARRATIVE: CASE EVENT DATE: 2012
